FAERS Safety Report 10708704 (Version 1)
Quarter: 2015Q1

REPORT INFORMATION
  Report Type: Spontaneous
  Country: ES (occurrence: ES)
  Receive Date: 20150113
  Receipt Date: 20150113
  Transmission Date: 20150721
  Serious: Yes (Other)
  Sender: FDA-Public Use
  Company Number: ES-CELGENE-ESP-2015010826

PATIENT
  Sex: Female

DRUGS (2)
  1. ABRAXANE [Suspect]
     Active Substance: PACLITAXEL
     Route: 041
     Dates: end: 201302
  2. ABRAXANE [Suspect]
     Active Substance: PACLITAXEL
     Indication: INFLAMMATORY CARCINOMA OF THE BREAST
     Route: 041

REACTIONS (13)
  - Metastases to liver [Unknown]
  - Diarrhoea [Unknown]
  - Anaemia [Unknown]
  - Alopecia [Unknown]
  - Peripheral sensory neuropathy [Unknown]
  - Myalgia [Unknown]
  - Rash [Unknown]
  - Lymphadenopathy [Recovered/Resolved]
  - Breast cancer [Unknown]
  - Lymphoedema [Unknown]
  - Asthenia [Unknown]
  - Neutropenia [Unknown]
  - Nail toxicity [Unknown]

NARRATIVE: CASE EVENT DATE: 2012
